FAERS Safety Report 7780851-6 (Version None)
Quarter: 2011Q3

REPORT INFORMATION
  Report Type: 
  Country: None (occurrence: None)
  Receive Date: 20110927
  Receipt Date: 20110921
  Transmission Date: 20111222
  Serious: No
  Sender: FDA-Public Use
  Company Number: US-PFIZER INC-2011192697

PATIENT
  Sex: Female
  Weight: 85.714 kg

DRUGS (3)
  1. PRISTIQ [Suspect]
     Indication: DEPRESSION
  2. PRISTIQ [Suspect]
     Indication: ANXIETY
     Dosage: 50 MG, DAILY
     Dates: start: 20081001
  3. XANAX [Concomitant]
     Indication: SLEEP DISORDER
     Dosage: 0.5 MG, DAILY

REACTIONS (6)
  - TREMOR [None]
  - DRUG INEFFECTIVE [None]
  - AGITATION [None]
  - HOSTILITY [None]
  - NERVOUSNESS [None]
  - AGGRESSION [None]
